FAERS Safety Report 13130632 (Version 1)
Quarter: 2017Q1

REPORT INFORMATION
  Report Type: Spontaneous
  Country: US (occurrence: US)
  Receive Date: 20170118
  Receipt Date: 20170118
  Transmission Date: 20170428
  Serious: Yes (Hospitalization)
  Sender: FDA-Public Use
  Company Number: None

PATIENT
  Age: 76 Year
  Sex: Male

DRUGS (7)
  1. LISINOPRIL. [Concomitant]
     Active Substance: LISINOPRIL
  2. PRAVASTATIN. [Concomitant]
     Active Substance: PRAVASTATIN
  3. WARFARIN [Concomitant]
     Active Substance: WARFARIN
  4. TASIGNA [Suspect]
     Active Substance: NILOTINIB
     Indication: CHRONIC MYELOID LEUKAEMIA
     Dosage: 300MG BID OR
     Route: 048
     Dates: start: 20161016
  5. LASIX [Concomitant]
     Active Substance: FUROSEMIDE
  6. VITAMIN A [Concomitant]
     Active Substance: VITAMIN A
  7. AMLODIPINE [Concomitant]
     Active Substance: AMLODIPINE BESYLATE

REACTIONS (3)
  - Nausea [None]
  - Cerebrovascular accident [None]
  - Atrial fibrillation [None]

NARRATIVE: CASE EVENT DATE: 201612
